FAERS Safety Report 9005557 (Version 1)
Quarter: 2013Q1

REPORT INFORMATION
  Report Type: Spontaneous
  Country: US (occurrence: US)
  Receive Date: 20130109
  Receipt Date: 20130109
  Transmission Date: 20140127
  Serious: Yes (Hospitalization)
  Sender: FDA-Public Use
  Company Number: US-PFIZER INC-2013005141

PATIENT
  Age: 37 Year
  Sex: Female
  Weight: 147 kg

DRUGS (1)
  1. GENOTROPIN [Suspect]
     Indication: BLOOD GROWTH HORMONE ABNORMAL
     Dosage: 0.2 MG, DAILY
     Dates: start: 201110

REACTIONS (1)
  - Neoplasm [Unknown]
